FAERS Safety Report 22350534 (Version 2)
Quarter: 2023Q2

REPORT INFORMATION
  Report Type: Report from Study
  Country: DE (occurrence: DE)
  Receive Date: 20230522
  Receipt Date: 20230613
  Transmission Date: 20230722
  Serious: No
  Sender: FDA-Public Use
  Company Number: DE-009507513-2304DEU001536

PATIENT

DRUGS (3)
  1. PEMETREXED [Suspect]
     Active Substance: PEMETREXED
     Dosage: 500 MG/M2, EVERY 3 WEEKS
     Dates: start: 20230207
  2. PEMBROLIZUMAB [Suspect]
     Active Substance: PEMBROLIZUMAB
     Indication: Lung neoplasm malignant
     Dosage: 200 MG, EVERY 3 WEEKS
     Dates: start: 20230207, end: 20230301
  3. CARBOPLATIN [Suspect]
     Active Substance: CARBOPLATIN
     Dosage: 620 MG, EVERY 3 WEEKS
     Dates: start: 20230207, end: 20230412

REACTIONS (5)
  - Immune-mediated hepatitis [Not Recovered/Not Resolved]
  - Dysgeusia [Not Recovered/Not Resolved]
  - Constipation [Not Recovered/Not Resolved]
  - Nausea [Recovered/Resolved]
  - Night sweats [Not Recovered/Not Resolved]

NARRATIVE: CASE EVENT DATE: 20230101
